FAERS Safety Report 23499724 (Version 3)
Quarter: 2024Q1

REPORT INFORMATION
  Report Type: Spontaneous
  Country: NL (occurrence: None)
  Receive Date: 20240208
  Receipt Date: 20240216
  Transmission Date: 20240409
  Serious: Yes (Death)
  Sender: FDA-Public Use
  Company Number: NL-ROCHE-3505736

PATIENT

DRUGS (2)
  1. TRASTUZUMAB [Suspect]
     Active Substance: TRASTUZUMAB
     Indication: HER2 mutant non-small cell lung cancer
     Route: 065
     Dates: start: 20211213
  2. PERTUZUMAB [Suspect]
     Active Substance: PERTUZUMAB
     Indication: HER2 mutant non-small cell lung cancer
     Route: 065
     Dates: start: 20211213

REACTIONS (2)
  - Disease progression [Fatal]
  - Pneumonitis [Unknown]

NARRATIVE: CASE EVENT DATE: 20220307
